FAERS Safety Report 5907174-1 (Version None)
Quarter: 2008Q4

REPORT INFORMATION
  Report Type: 
  Country: None (occurrence: None)
  Receive Date: 20081003
  Receipt Date: 20080929
  Transmission Date: 20090506
  Serious: Yes (Death, Hospitalization, Other)
  Sender: FDA-Public Use
  Company Number: BR-ABBOTT-08P-020-0473220-00

PATIENT
  Sex: Male

DRUGS (3)
  1. HUMIRA [Suspect]
     Indication: RHEUMATOID ARTHRITIS
     Route: 058
     Dates: start: 20080413, end: 20080501
  2. CALCIUM-SANDOZ [Concomitant]
     Indication: OSTEOPOROSIS
  3. UNKNOWN MAGISTRAL FORMULA [Concomitant]
     Indication: RHEUMATOID ARTHRITIS
     Route: 048
     Dates: end: 20080430

REACTIONS (8)
  - ARTHRALGIA [None]
  - ERYTHEMA [None]
  - FURUNCLE [None]
  - GANGRENE [None]
  - JOINT SWELLING [None]
  - OEDEMA PERIPHERAL [None]
  - PALLOR [None]
  - PYREXIA [None]
